FAERS Safety Report 21219852 (Version 2)
Quarter: 2022Q4

REPORT INFORMATION
  Report Type: Spontaneous
  Country: BR (occurrence: BR)
  Receive Date: 20220817
  Receipt Date: 20221007
  Transmission Date: 20230113
  Serious: Yes (Other)
  Sender: FDA-Public Use
  Company Number: BR-CELLTRION INC.-2022BR012979

PATIENT

DRUGS (2)
  1. INFLIXIMAB [Suspect]
     Active Substance: INFLIXIMAB
     Indication: Product used for unknown indication
     Dosage: 4 AMPOULES OF 100MG
     Route: 042
  2. ZANTAC [Concomitant]
     Active Substance: RANITIDINE HYDROCHLORIDE
     Indication: Crohn^s disease
     Dosage: 3 TIMER PER DAY, START: 21 YEARS AGO
     Route: 048

REACTIONS (7)
  - Haematochezia [Unknown]
  - Diarrhoea [Recovered/Resolved]
  - Sweat gland infection [Recovered/Resolved]
  - Abdominal pain upper [Recovered/Resolved]
  - Therapy interrupted [Unknown]
  - Condition aggravated [Unknown]
  - Product communication issue [Unknown]
